FAERS Safety Report 19060829 (Version 2)
Quarter: 2021Q2

REPORT INFORMATION
  Report Type: Report from Study
  Country: CN (occurrence: CN)
  Receive Date: 20210325
  Receipt Date: 20210412
  Transmission Date: 20210717
  Serious: Yes (Other)
  Sender: FDA-Public Use
  Company Number: CN-VIIV HEALTHCARE LIMITED-CN2021GSK065735

PATIENT
  Age: 49 Year
  Sex: Male

DRUGS (6)
  1. ENTECAVIR. [Suspect]
     Active Substance: ENTECAVIR
     Indication: CHRONIC HEPATITIS C
     Dosage: UNK
     Dates: start: 200802, end: 200908
  2. ENTECAVIR. [Suspect]
     Active Substance: ENTECAVIR
     Dosage: UNK
     Dates: start: 200908, end: 201410
  3. ADEFOVIR DIPIVOXIL. [Suspect]
     Active Substance: ADEFOVIR DIPIVOXIL
     Dosage: UNK
     Dates: start: 200908, end: 201410
  4. TENOFOVIR DISOPROXIL FUMARATE. [Suspect]
     Active Substance: TENOFOVIR DISOPROXIL FUMARATE
     Indication: CHRONIC HEPATITIS C
     Dosage: UNK
     Dates: start: 201410, end: 201710
  5. LAMIVUDINE. [Suspect]
     Active Substance: LAMIVUDINE
     Indication: CHRONIC HEPATITIS C
     Dosage: UNK
     Dates: start: 200411, end: 200512
  6. ADEFOVIR DIPIVOXIL. [Suspect]
     Active Substance: ADEFOVIR DIPIVOXIL
     Indication: CHRONIC HEPATITIS C
     Dosage: UNK
     Dates: start: 200512, end: 200802

REACTIONS (5)
  - Multiple-drug resistance [Unknown]
  - Pathogen resistance [Unknown]
  - Therapeutic product effect incomplete [Unknown]
  - Blood phosphorus decreased [Unknown]
  - Viral mutation identified [Unknown]
